FAERS Safety Report 11145663 (Version 1)
Quarter: 2015Q2

REPORT INFORMATION
  Report Type: Spontaneous
  Country: US (occurrence: None)
  Receive Date: 20150527
  Receipt Date: 20150527
  Transmission Date: 20150821
  Serious: No
  Sender: FDA-Public Use
  Company Number: None

PATIENT
  Sex: Male
  Weight: 79 kg

DRUGS (1)
  1. REMBRANDT 2 HOUR WHITENING KIT [Suspect]
     Active Substance: GLYCERIN\HYDROGEN PEROXIDE
     Indication: DENTAL COSMETIC PROCEDURE
     Route: 048
     Dates: start: 20150301, end: 20150301

REACTIONS (5)
  - Gingival pain [None]
  - Feeding disorder [None]
  - Scab [None]
  - Gingivitis [None]
  - Gingival recession [None]

NARRATIVE: CASE EVENT DATE: 20150301
